FAERS Safety Report 11518916 (Version 4)
Quarter: 2015Q4

REPORT INFORMATION
  Report Type: Report from Study
  Country: HU (occurrence: HU)
  Receive Date: 20150917
  Receipt Date: 20151030
  Transmission Date: 20160304
  Serious: Yes (Hospitalization)
  Sender: FDA-Public Use
  Company Number: HU-ABBVIE-15P-076-1462834-00

PATIENT
  Age: 55 Year
  Sex: Female

DRUGS (3)
  1. MODERIBA [Suspect]
     Active Substance: RIBAVIRIN
     Indication: HEPATITIS C
     Route: 048
     Dates: start: 20150608, end: 201507
  2. VIEKIRAX [Suspect]
     Active Substance: OMBITASVIR\PARITAPREVIR\RITONAVIR
     Indication: HEPATITIS C
     Dosage: 12.5/75/50MG, 2 TABLETS AT A TIME
     Route: 048
     Dates: start: 20150608, end: 20150903
  3. EXVIERA [Suspect]
     Active Substance: DASABUVIR
     Indication: HEPATITIS C
     Route: 048
     Dates: start: 20150608, end: 20150903

REACTIONS (7)
  - Jaundice [Recovering/Resolving]
  - Off label use [Unknown]
  - Renal disorder [Unknown]
  - Escherichia sepsis [Recovering/Resolving]
  - Stoma site haemorrhage [Recovered/Resolved]
  - Renal failure [Recovered/Resolved]
  - Hepatic cirrhosis [Recovered/Resolved]

NARRATIVE: CASE EVENT DATE: 201506
